FAERS Safety Report 4341637-8 (Version None)
Quarter: 2004Q2

REPORT INFORMATION
  Report Type: 
  Country: None (occurrence: None)
  Receive Date: 20040420
  Receipt Date: 20031229
  Transmission Date: 20050107
  Serious: Yes (Other)
  Sender: FDA-Public Use
  Company Number: DE-ROCHE-354903

PATIENT
  Age: 58 Year
  Sex: Female

DRUGS (7)
  1. PEGASYS [Suspect]
     Route: 058
     Dates: start: 20031007, end: 20040215
  2. COPEGUS [Suspect]
     Route: 048
     Dates: start: 20031007, end: 20040215
  3. LEGALON [Concomitant]
  4. ASPIRIN 100 [Concomitant]
  5. DILTIAZEM HCL [Concomitant]
  6. EZETROL [Concomitant]
     Dosage: 10 MG
  7. DELIX 2,5 PLUS [Concomitant]

REACTIONS (10)
  - DECREASED APPETITE [None]
  - DEPRESSED MOOD [None]
  - DYSPEPSIA [None]
  - FATIGUE [None]
  - HYPERSENSITIVITY [None]
  - NAUSEA [None]
  - RETINAL TEAR [None]
  - SLEEP DISORDER [None]
  - URTICARIA [None]
  - VITREOUS OPACITIES [None]
